FAERS Safety Report 17392723 (Version 1)
Quarter: 2020Q1

REPORT INFORMATION
  Report Type: Report from Study
  Country: US (occurrence: US)
  Receive Date: 20200207
  Receipt Date: 20200207
  Transmission Date: 20200409
  Serious: Yes (Hospitalization, Other)
  Sender: FDA-Public Use
  Company Number: US-GLAXOSMITHKLINE-US2020GSK018664

PATIENT
  Age: 73 Year
  Sex: Female
  Weight: 53.2 kg

DRUGS (7)
  1. NIRAPARIB [Suspect]
     Active Substance: NIRAPARIB
     Dosage: 200 MG, QD(APPROX. SAME TIME)
     Route: 048
  2. PLACEBO [Suspect]
     Active Substance: UNSPECIFIED INGREDIENT
     Dosage: 1000 MG, EVERY 21 DAYS FOR 5 CYCLES, THEN EVERY 6 WEEKS FOR UP TO 3 YEARS
     Route: 042
     Dates: start: 20200108
  3. TYLENOL [Concomitant]
     Active Substance: ACETAMINOPHEN
  4. PLACEBO [Suspect]
     Active Substance: UNSPECIFIED INGREDIENT
     Indication: OVARIAN CANCER
     Dosage: 500 MG, EVERY 21 DAYS FOR 5 CYCLES, THEN EVERY 6 WEEKS FOR UP TO 3 YEARS
     Route: 042
     Dates: start: 20190815
  5. MUCINEX [Concomitant]
     Active Substance: GUAIFENESIN
  6. IBUPROFEN. [Concomitant]
     Active Substance: IBUPROFEN
  7. NIRAPARIB [Suspect]
     Active Substance: NIRAPARIB
     Indication: OVARIAN CANCER
     Dosage: 200 MG, QD (APPROX. SAME TIME)
     Route: 048
     Dates: start: 20191127

REACTIONS (4)
  - Upper respiratory tract infection [Unknown]
  - Rhinovirus infection [Unknown]
  - Acute respiratory failure [Unknown]
  - Hypoxia [Unknown]

NARRATIVE: CASE EVENT DATE: 20200117
